FAERS Safety Report 23124846 (Version 1)
Quarter: 2023Q4

REPORT INFORMATION
  Report Type: Spontaneous
  Country: FR (occurrence: FR)
  Receive Date: 20231030
  Receipt Date: 20231030
  Transmission Date: 20240109
  Serious: Yes (Other)
  Sender: FDA-Public Use
  Company Number: FR-KOREA IPSEN Pharma-2023-24439

PATIENT
  Sex: Male

DRUGS (2)
  1. CABOMETYX [Suspect]
     Active Substance: CABOZANTINIB S-MALATE
     Indication: Renal cell carcinoma
     Dosage: DOUBLE DOSAGE 60 MG AND 40 MG EVERY OTHER DAY
     Route: 065
  2. CABOMETYX [Suspect]
     Active Substance: CABOZANTINIB S-MALATE
     Dosage: DOUBLE DOSAGE 60 MG AND 40 MG EVERY OTHER DAY
     Route: 065

REACTIONS (2)
  - Ascites [Unknown]
  - Off label use [Unknown]
